FAERS Safety Report 20867559 (Version 5)
Quarter: 2022Q3

REPORT INFORMATION
  Report Type: Report from Study
  Country: DE (occurrence: DE)
  Receive Date: 20220524
  Receipt Date: 20220712
  Transmission Date: 20221027
  Serious: Yes (Hospitalization)
  Sender: FDA-Public Use
  Company Number: DE-PFIZER INC-202200710891

PATIENT
  Age: 69 Year
  Sex: Female
  Weight: 79 kg

DRUGS (5)
  1. AXITINIB [Suspect]
     Active Substance: AXITINIB
     Indication: Renal cell carcinoma
     Dosage: 5 MG, 2X/DAY
     Route: 048
     Dates: start: 20220303, end: 20220406
  2. AXITINIB [Suspect]
     Active Substance: AXITINIB
     Dosage: 5 MG, 2X/DAY
     Route: 048
     Dates: start: 20220504, end: 20220511
  3. PEMBROLIZUMAB [Suspect]
     Active Substance: PEMBROLIZUMAB
     Indication: Renal cell carcinoma
     Dosage: 200 MG EVERY 3 WEEKS ADMINISTERED AS INTRAVENOUS INFUSION OVER 30 MINUTES
     Route: 042
     Dates: start: 20220303
  4. PEMBROLIZUMAB [Suspect]
     Active Substance: PEMBROLIZUMAB
     Dosage: 200 MG EVERY 3 WEEKS ADMINISTERED AS INTRAVENOUS INFUSION OVER 30 MINUTES
     Route: 042
     Dates: start: 20220330, end: 20220330
  5. PEMBROLIZUMAB [Suspect]
     Active Substance: PEMBROLIZUMAB
     Dosage: 200 MG EVERY 3 WEEKS ADMINISTERED AS INTRAVENOUS INFUSION OVER 30 MINUTES
     Route: 042
     Dates: start: 20220525

REACTIONS (1)
  - Hepatitis [Recovered/Resolved]

NARRATIVE: CASE EVENT DATE: 20220406
